FAERS Safety Report 7364558-5 (Version None)
Quarter: 2011Q1

REPORT INFORMATION
  Report Type: 
  Country: None (occurrence: None)
  Receive Date: 20110307
  Receipt Date: 20110307
  Transmission Date: 20110831
  Serious: Yes (Other)
  Sender: FDA-Public Use
  Company Number: None

PATIENT
  Sex: Female
  Weight: 63.5036 kg

DRUGS (2)
  1. PHENYTOIN SODIUM [Concomitant]
  2. OXCARBAZEPINE [Suspect]
     Indication: CONVULSION
     Dosage: 300 MG TABLETS TWICE DAILY MOUTH
     Route: 048
     Dates: start: 20110216, end: 20110219

REACTIONS (2)
  - DYSSTASIA [None]
  - ASTHENIA [None]
